FAERS Safety Report 6085279-5 (Version None)
Quarter: 2009Q1

REPORT INFORMATION
  Report Type: 
  Country: None (occurrence: None)
  Receive Date: 20090220
  Receipt Date: 20090209
  Transmission Date: 20090719
  Serious: Yes (Other)
  Sender: FDA-Public Use
  Company Number: GB-JNJFOC-20090202409

PATIENT
  Age: 56 Year
  Sex: Female
  Weight: 65 kg

DRUGS (7)
  1. REMICADE [Suspect]
     Indication: RHEUMATOID ARTHRITIS
     Route: 042
  2. GOLD [Concomitant]
  3. METHOTREXATE [Concomitant]
  4. ACETAMINOPHEN WITH PROPOXYPHENE HCL TAB [Concomitant]
  5. DIDRONEL [Concomitant]
  6. FOLIC ACID [Concomitant]
  7. MELOXICAM [Concomitant]

REACTIONS (1)
  - CERVIX CARCINOMA STAGE 0 [None]
